FAERS Safety Report 18704813 (Version 2)
Quarter: 2021Q1

REPORT INFORMATION
  Report Type: Report from Study
  Country: US (occurrence: US)
  Receive Date: 20210105
  Receipt Date: 20210201
  Transmission Date: 20210419
  Serious: Yes (Hospitalization, Other)
  Sender: FDA-Public Use
  Company Number: US-UCBSA-2020054983

PATIENT
  Age: 81 Year
  Sex: Male

DRUGS (1)
  1. BRIVARACETAM [Suspect]
     Active Substance: BRIVARACETAM
     Indication: EPILEPSY
     Dosage: 50 MILLIGRAM, 2X/DAY (BID)

REACTIONS (6)
  - Renal impairment [Unknown]
  - Cerebrovascular accident [Not Recovered/Not Resolved]
  - Cholelithiasis [Unknown]
  - Atrial fibrillation [Unknown]
  - Gait disturbance [Unknown]
  - Vomiting [Unknown]

NARRATIVE: CASE EVENT DATE: 20190506
